FAERS Safety Report 12343168 (Version 1)
Quarter: 2016Q2

REPORT INFORMATION
  Report Type: Spontaneous
  Country: FR (occurrence: FR)
  Receive Date: 20160506
  Receipt Date: 20160506
  Transmission Date: 20160815
  Serious: Yes (Hospitalization, Other)
  Sender: FDA-Public Use
  Company Number: FR-PFIZER INC-2016237657

PATIENT
  Age: 75 Year
  Sex: Male

DRUGS (16)
  1. LYRICA [Suspect]
     Active Substance: PREGABALIN
     Indication: BIPOLAR DISORDER
     Dosage: 100 MG, 3X/DAY IN THE MORNING, AT LUNCH TIME, AND IN THE EVENING
     Route: 048
     Dates: end: 20151109
  2. AVLOCARDYL /00030001/ [Concomitant]
     Active Substance: PROPRANOLOL HYDROCHLORIDE
     Dosage: 0.5 DF OF 40 MG, 1X/DAY IN THE MORNING
  3. PLAVIX [Concomitant]
     Active Substance: CLOPIDOGREL BISULFATE
     Dosage: 75 MG, 1X/DAY IN THE MORNING
  4. NOVORAPID [Concomitant]
     Active Substance: INSULIN ASPART
     Dosage: 6 IU, 1X/DAY AT NOON
     Dates: end: 20151106
  5. XEROQUEL [Suspect]
     Active Substance: QUETIAPINE FUMARATE
     Indication: BIPOLAR DISORDER
     Dosage: 2 DF OF 300 MG, 1X/DAY IN THE EVENING
     Route: 048
  6. NOVOMIX [Concomitant]
     Active Substance: INSULIN ASPART
     Dosage: 20 IU IN THE MORNING, 17 IU IN THE EVENING
  7. NOVORAPID [Concomitant]
     Active Substance: INSULIN ASPART
     Dosage: AT EACH MEAL
     Dates: start: 20151106
  8. LAMOTRIGIN [Concomitant]
     Active Substance: LAMOTRIGINE
     Dosage: 100 MG, 2X/DAY IN THE MORNING AND IN THE EVENING
  9. DAFALGAN [Concomitant]
     Active Substance: ACETAMINOPHEN
     Indication: PAIN
     Dosage: 2 DF OF 500 MG, 3X/DAY IN THE MORNING, AT NOON, AND IN THE EVENING, IF PAIN
  10. PRAVASTATIN [Concomitant]
     Active Substance: PRAVASTATIN\PRAVASTATIN SODIUM
     Dosage: 20 MG, 1X/DAY IN THE MORNING
  11. INEXIUM /01479302/ [Concomitant]
     Active Substance: ESOMEPRAZOLE MAGNESIUM
     Dosage: 40 MG, 1X/DAY IN THE MORNING
  12. TEMESTA /00273201/ [Concomitant]
     Active Substance: LORAZEPAM
     Dosage: 1 MG, 2X/DAY IN THE MORNING AND IN THE EVENING
  13. XEROQUEL [Suspect]
     Active Substance: QUETIAPINE FUMARATE
     Dosage: 300 MG, SINGLE
     Route: 048
     Dates: start: 20151109, end: 20151109
  14. LEVOTHYROX [Concomitant]
     Active Substance: LEVOTHYROXINE
     Dosage: 50 UG, 1X/DAY IN THE MORNING
  15. MOVICOL [Concomitant]
     Active Substance: POLYETHYLENE GLYCOL 3350\POTASSIUM CHLORIDE\SODIUM BICARBONATE\SODIUM CHLORIDE
     Dosage: 2 DF, 3X/DAY IN THE MORNING, AT NOON, AND IN THE EVENING
  16. LANTUS [Concomitant]
     Active Substance: INSULIN GLARGINE
     Dosage: UNK, 1X/DAY IN THE EVENING
     Dates: start: 20151106

REACTIONS (2)
  - Neutropenia [Recovered/Resolved]
  - Product use issue [Unknown]

NARRATIVE: CASE EVENT DATE: 20151108
